FAERS Safety Report 24205296 (Version 1)
Quarter: 2024Q3

REPORT INFORMATION
  Report Type: Spontaneous
  Country: US (occurrence: None)
  Receive Date: 20240812
  Receipt Date: 20240812
  Transmission Date: 20241017
  Serious: Yes (Hospitalization)
  Sender: Public
  Company Number: None

PATIENT
  Sex: Female

DRUGS (1)
  1. VYNDAMAX [Suspect]
     Active Substance: TAFAMIDIS
     Indication: Cardiomyopathy
     Dosage: 61MG ONCE DAILY ORAL
     Route: 048
     Dates: start: 202407

REACTIONS (3)
  - Cardiac failure [None]
  - Atrial fibrillation [None]
  - Cardiac flutter [None]
